FAERS Safety Report 4325380-7 (Version None)
Quarter: 2004Q1

REPORT INFORMATION
  Report Type: 
  Country: None (occurrence: None)
  Receive Date: 20040324
  Receipt Date: 20040312
  Transmission Date: 20041129
  Serious: Yes (Death)
  Sender: FDA-Public Use
  Company Number: 03P-163-0244470-00

PATIENT
  Age: 71 Year
  Sex: Female

DRUGS (6)
  1. DEPAKOTE [Suspect]
     Indication: HEADACHE
     Dosage: 250 MG, 2 IN 1 D, PER ORAL
     Route: 048
     Dates: start: 20021201, end: 20031001
  2. DEPAKOTE [Suspect]
     Indication: VERTIGO
     Dosage: 250 MG, 2 IN 1 D, PER ORAL
     Route: 048
     Dates: start: 20021201, end: 20031001
  3. FEXOFENADINE HYDROCHLORIDE [Concomitant]
  4. BUDESONIDE [Concomitant]
  5. GUAIFENESIN [Concomitant]
  6. FLUTICASONE PROPIONATE [Concomitant]

REACTIONS (1)
  - BONE MARROW DEPRESSION [None]
